FAERS Safety Report 20028154 (Version 2)
Quarter: 2022Q1

REPORT INFORMATION
  Report Type: Report from Study
  Country: US (occurrence: US)
  Receive Date: 20211103
  Receipt Date: 20220111
  Transmission Date: 20220423
  Serious: Yes (Other)
  Sender: FDA-Public Use
  Company Number: US-ABBVIE-21K-163-4142560-00

PATIENT
  Sex: Female

DRUGS (3)
  1. HUMIRA [Suspect]
     Active Substance: ADALIMUMAB
     Indication: Rheumatoid arthritis
     Dosage: CF
     Route: 058
  2. MODERNA COVID-19 VACCINE [Suspect]
     Active Substance: ELASOMERAN
     Indication: COVID-19 immunisation
     Dosage: FIRST DOSE
     Route: 030
     Dates: start: 20210910, end: 20210910
  3. MODERNA COVID-19 VACCINE [Suspect]
     Active Substance: ELASOMERAN
     Dosage: SECOND DOSE
     Route: 030
     Dates: start: 20211001, end: 20211001

REACTIONS (9)
  - Chronic kidney disease [Recovering/Resolving]
  - Intraocular lens implant [Recovered/Resolved]
  - Thoracic vertebral fracture [Recovering/Resolving]
  - Gout [Unknown]
  - COVID-19 [Recovered/Resolved]
  - Suspected COVID-19 [Unknown]
  - Injection site pruritus [Unknown]
  - General physical health deterioration [Unknown]
  - Unevaluable event [Unknown]

NARRATIVE: CASE EVENT DATE: 20110101
